FAERS Safety Report 7825873-1 (Version None)
Quarter: 2011Q4

REPORT INFORMATION
  Report Type: 
  Country: None (occurrence: None)
  Receive Date: 20111019
  Receipt Date: 20111012
  Transmission Date: 20120403
  Serious: Yes (Hospitalization)
  Sender: FDA-Public Use
  Company Number: FR-ROCHE-715366

PATIENT
  Sex: Male
  Weight: 72 kg

DRUGS (13)
  1. XANAX [Concomitant]
     Dosage: TDD: 0.5
  2. AMLODIPINE BESYLATE [Concomitant]
     Dosage: TDD: 5, REPORTED AS: AMLOR.
  3. SECTRAL [Concomitant]
     Dosage: TDD: 200
  4. BACTRIM [Concomitant]
     Dosage: TDD: 400
  5. CYCLOSPORINE [Suspect]
  6. MYCOPHENOLATE MOFETIL (CELLCEPT) [Suspect]
     Indication: RENAL TRANSPLANT
     Dosage: FREQUENCY AND FORM: NOT PROVIDED
     Route: 048
  7. PREDNISONE [Suspect]
     Indication: RENAL TRANSPLANT
     Dosage: DOSE: 7.5, (FORM, FREQUENCY, UNITS NOT PROVIDED)
     Route: 048
  8. EVEROLIMUS [Suspect]
     Indication: RENAL TRANSPLANT
     Dosage: DOSE: 350
     Route: 048
  9. ASPIRIN [Concomitant]
     Dosage: TDD: 75
  10. VALGANCICLOVIR [Concomitant]
     Dosage: DOSE: 450
  11. PANTOPRAZOLE [Concomitant]
     Dosage: TDD: 40
  12. CYCLOSPORINE [Suspect]
     Indication: RENAL TRANSPLANT
     Dosage: DOSE: 250, (UNITS, FORM, FREQUENCY:NOT PROVIDED).
     Route: 048
  13. ASPIRIN [Concomitant]

REACTIONS (2)
  - POSTRENAL FAILURE [None]
  - URINARY TRACT INFECTION [None]
